FAERS Safety Report 5989940-X (Version None)
Quarter: 2008Q4

REPORT INFORMATION
  Report Type: 
  Country: None (occurrence: None)
  Receive Date: 20081211
  Receipt Date: 20080821
  Transmission Date: 20090506
  Serious: No
  Sender: FDA-Public Use
  Company Number: CA-BAYER-200822737NA

PATIENT

DRUGS (1)
  1. AVELOX [Suspect]
     Indication: DRUG USE FOR UNKNOWN INDICATION
     Route: 048

REACTIONS (2)
  - ENCEPHALITIS [None]
  - MENINGITIS [None]
